FAERS Safety Report 16792952 (Version 1)
Quarter: 2019Q3

REPORT INFORMATION
  Report Type: Spontaneous
  Country: BE (occurrence: BE)
  Receive Date: 20190911
  Receipt Date: 20190911
  Transmission Date: 20191005
  Serious: Yes (Hospitalization)
  Sender: FDA-Public Use
  Company Number: BE-ASTRAZENECA-2019SF25597

PATIENT
  Sex: Female

DRUGS (5)
  1. CLARITHROMYCINE [Suspect]
     Active Substance: CLARITHROMYCIN
     Route: 065
  2. ENTEROL (SACCHAROMYCES BOULARDII) [Suspect]
     Active Substance: SACCHAROMYCES CEREVISIAE
     Route: 065
  3. OMEPRAZOLE. [Suspect]
     Active Substance: OMEPRAZOLE
     Route: 048
  4. AMOXICILLINE [Suspect]
     Active Substance: AMOXICILLIN
     Route: 048
  5. FLAGYL [Suspect]
     Active Substance: METRONIDAZOLE\METRONIDAZOLE HYDROCHLORIDE
     Route: 065

REACTIONS (2)
  - Dry mouth [Unknown]
  - Language disorder [Unknown]
